FAERS Safety Report 4523898-5 (Version None)
Quarter: 2004Q4

REPORT INFORMATION
  Report Type: 
  Country: None (occurrence: None)
  Receive Date: 20041116
  Receipt Date: 20040802
  Transmission Date: 20050328
  Serious: No
  Sender: FDA-Public Use
  Company Number: S04-USA-05766-01

PATIENT
  Age: 86 Year
  Sex: Female

DRUGS (6)
  1. NAMENDA [Suspect]
     Indication: DEMENTIA ALZHEIMER'S TYPE
     Dosage: 5 MG QD PO
     Route: 048
     Dates: start: 20040701, end: 20040101
  2. NAMENDA [Suspect]
     Indication: DEMENTIA ALZHEIMER'S TYPE
     Dosage: 5 MG  BID PO
     Route: 048
     Dates: end: 20040101
  3. AVANDIA [Concomitant]
     Indication: DEMENTIA ALZHEIMER'S TYPE
     Dosage: 5 MG BID PO
     Route: 048
     Dates: start: 20040101
  4. SYNTHROID [Concomitant]
  5. DOXEPIN HCL [Concomitant]
  6. ARICPET 9DONEPEZIL HYDROCHLORIDE) [Concomitant]

REACTIONS (2)
  - ERYTHEMA [None]
  - SWELLING FACE [None]
